FAERS Safety Report 23085378 (Version 1)
Quarter: 2023Q4

REPORT INFORMATION
  Report Type: Spontaneous
  Country: US (occurrence: US)
  Receive Date: 20231019
  Receipt Date: 20231019
  Transmission Date: 20240110
  Serious: Yes (Other)
  Sender: FDA-Public Use
  Company Number: US-PFIZER INC-202300331426

PATIENT
  Age: 67 Year
  Sex: Female
  Weight: 79.38 kg

DRUGS (1)
  1. PAXLOVID [Suspect]
     Active Substance: NIRMATRELVIR\RITONAVIR
     Indication: COVID-19 treatment
     Dosage: UNK

REACTIONS (16)
  - Blood cholesterol increased [Unknown]
  - Blood glucose increased [Unknown]
  - Body temperature decreased [Unknown]
  - Multiple sclerosis relapse [Unknown]
  - Visual impairment [Not Recovered/Not Resolved]
  - Optic neuritis [Not Recovered/Not Resolved]
  - Condition aggravated [Not Recovered/Not Resolved]
  - Blindness [Unknown]
  - COVID-19 [Unknown]
  - Disease recurrence [Unknown]
  - Sneezing [Unknown]
  - Cough [Unknown]
  - Headache [Unknown]
  - Gait inability [Unknown]
  - Feeling abnormal [Unknown]
  - Product dose omission issue [Unknown]
